FAERS Safety Report 20808168 (Version 2)
Quarter: 2022Q4

REPORT INFORMATION
  Report Type: Spontaneous
  Country: US (occurrence: None)
  Receive Date: 20220510
  Receipt Date: 20221202
  Transmission Date: 20230112
  Serious: Yes (Life-Threatening, Hospitalization, Disabling, Other)
  Sender: FDA-Public Use
  Company Number: 2022A176268

PATIENT
  Age: 18423 Day
  Sex: Female
  Weight: 81.6 kg

DRUGS (10)
  1. CRESTOR [Suspect]
     Active Substance: ROSUVASTATIN CALCIUM
     Indication: Blood cholesterol abnormal
     Route: 048
     Dates: start: 1995, end: 20201123
  2. PREDNISONE [Concomitant]
     Active Substance: PREDNISONE
  3. NORVASC [Concomitant]
     Active Substance: AMLODIPINE BESYLATE
     Dosage: TAKE ONE TABLET BY MOUTH TWICE DAILY
  4. WELLBUTRIN [Concomitant]
     Active Substance: BUPROPION HYDROCHLORIDE
     Dosage: TAKE ONE TABLET BY MOUTH TWICE DAILY
  5. COREG [Concomitant]
     Active Substance: CARVEDILOL
  6. KLONOPIN [Concomitant]
     Active Substance: CLONAZEPAM
  7. NEXIUM [Concomitant]
     Active Substance: ESOMEPRAZOLE MAGNESIUM
  8. HYZAAR [Concomitant]
     Active Substance: HYDROCHLOROTHIAZIDE\LOSARTAN POTASSIUM
  9. ZOLOFT [Concomitant]
     Active Substance: SERTRALINE HYDROCHLORIDE
  10. RISPERDAL [Concomitant]
     Active Substance: RISPERIDONE

REACTIONS (13)
  - Myopathy [Not Recovered/Not Resolved]
  - Muscle injury [Not Recovered/Not Resolved]
  - Muscular weakness [Unknown]
  - Gait disturbance [Unknown]
  - Diplopia [Unknown]
  - Dyspnoea [Unknown]
  - Myalgia [Unknown]
  - Malaise [Unknown]
  - Fall [Unknown]
  - Urinary tract infection [Unknown]
  - Musculoskeletal discomfort [Unknown]
  - Blood creatine phosphokinase increased [Unknown]
  - Aldolase increased [Unknown]

NARRATIVE: CASE EVENT DATE: 20150316
